FAERS Safety Report 7576817-1 (Version None)
Quarter: 2011Q2

REPORT INFORMATION
  Report Type: 
  Country: None (occurrence: None)
  Receive Date: 20110628
  Receipt Date: 20110617
  Transmission Date: 20111010
  Serious: Yes (Other)
  Sender: FDA-Public Use
  Company Number: FR-JNJFOC-20110601932

PATIENT
  Sex: Male
  Weight: 130 kg

DRUGS (1)
  1. STELARA [Suspect]
     Indication: PSORIASIS
     Route: 058

REACTIONS (3)
  - VISUAL ACUITY REDUCED [None]
  - KERATITIS [None]
  - CONJUNCTIVITIS [None]
